FAERS Safety Report 6752498-1 (Version None)
Quarter: 2010Q2

REPORT INFORMATION
  Report Type: 
  Country: None (occurrence: None)
  Receive Date: 20100601
  Receipt Date: 20100601
  Transmission Date: 20101027
  Serious: Yes (Hospitalization)
  Sender: FDA-Public Use
  Company Number: None

PATIENT
  Sex: Male
  Weight: 18.4 kg

DRUGS (3)
  1. PEGINTERFERON ALFA-2B [Suspect]
     Indication: NEUROFIBROMA
     Dosage: 20 MCG WEEKLY SQ
     Route: 058
     Dates: start: 20100108, end: 20100521
  2. ENALOPRIL [Concomitant]
  3. ISRADIPINE [Concomitant]

REACTIONS (1)
  - HYPERTENSION [None]
